FAERS Safety Report 10049740 (Version 1)
Quarter: 2014Q1

REPORT INFORMATION
  Report Type: Spontaneous
  Country: GB (occurrence: None)
  Receive Date: 20140328
  Receipt Date: 20140328
  Transmission Date: 20141002
  Serious: Yes (Disabling)
  Sender: FDA-Public Use
  Company Number: AUR-APL-2014-03867

PATIENT
  Age: 48 Year
  Sex: Male
  Weight: 96.1 kg

DRUGS (11)
  1. TERBINAFINE [Suspect]
     Indication: PRODUCT USED FOR UNKNOWN INDICATION
  2. AMLODIPINE (AMLODIPINE) [Concomitant]
  3. ASPIRIN (ACETYLSALICYLIC ACID) [Concomitant]
  4. ATORVASTATIN (ATORVASTATIN) [Concomitant]
  5. CANDESARTAN (CANDESARTAN) [Concomitant]
  6. DOMPERIDONE (DOMPERIDONE) [Concomitant]
  7. GAVISCON ADVANCE (GAVISCON ADVANCE) [Concomitant]
  8. GLICLAZIDE (GLICLAZIDE) [Concomitant]
  9. HUMALOG MIX (HUMALOG MIX) [Concomitant]
  10. MIRTAZAPINE (MIRTAZAPINE) [Concomitant]
  11. OMEPRAZOLE (OMEPRAZOLE) [Concomitant]

REACTIONS (5)
  - Proteinuria [None]
  - Fluid retention [None]
  - Local swelling [None]
  - Joint swelling [None]
  - Arthralgia [None]
